FAERS Safety Report 18761317 (Version 1)
Quarter: 2021Q1

REPORT INFORMATION
  Report Type: Spontaneous
  Country: US (occurrence: US)
  Receive Date: 20210120
  Receipt Date: 20210120
  Transmission Date: 20210419
  Serious: Yes (Other)
  Sender: FDA-Public Use
  Company Number: US-ACCORD-214656

PATIENT
  Age: 62 Year
  Sex: Female

DRUGS (19)
  1. LEVOCARNITINE. [Concomitant]
     Active Substance: LEVOCARNITINE
  2. SERTRALINE [Concomitant]
     Active Substance: SERTRALINE HYDROCHLORIDE
  3. LISINOPRIL. [Concomitant]
     Active Substance: LISINOPRIL
  4. GABAPENTIN. [Concomitant]
     Active Substance: GABAPENTIN
     Dosage: 300 MILLIGRAM
  5. FAMPRIDINE [Suspect]
     Active Substance: DALFAMPRIDINE
     Indication: MULTIPLE SCLEROSIS
     Dosage: BID, ABOUT 10 YEARS AGO
     Route: 048
  6. VUMERITY [Suspect]
     Active Substance: DIROXIMEL FUMARATE
     Indication: MULTIPLE SCLEROSIS
     Dosage: 4 IN 1 DAY
     Dates: start: 20201020
  7. BUPROPION. [Concomitant]
     Active Substance: BUPROPION
  8. PHOSPHATIDYL SERINE [Concomitant]
     Active Substance: PHOSPHATIDYL SERINE
  9. PROBIOTIC [Concomitant]
     Active Substance: PROBIOTICS NOS
  10. ZINC OXIDE. [Concomitant]
     Active Substance: ZINC OXIDE
  11. GILENYA [Suspect]
     Active Substance: FINGOLIMOD HYDROCHLORIDE
     Indication: PRODUCT USED FOR UNKNOWN INDICATION
  12. LIOTHYRONINE [Concomitant]
     Active Substance: LIOTHYRONINE
  13. NALTREXONE [Concomitant]
     Active Substance: NALTREXONE
  14. BACLOFEN. [Concomitant]
     Active Substance: BACLOFEN
     Dosage: 10 MILLIGRAM
  15. FISH OIL [Concomitant]
     Active Substance: FISH OIL
  16. ASCORBIC ACID/ERGOCALCIFEROL/FOLIC ACID/NICOTINAMIDE/PANTHENOL/RETINOL/RIBOFLAVIN/THIAMINE HYDROCHLO [Concomitant]
     Active Substance: ASCORBIC ACID\ERGOCALCIFEROL\FOLIC ACID\NIACIN\PANTHENOL\RETINOL\RIBOFLAVIN\THIAMINE HYDROCHLORIDE
  17. DALFAMPRIDINE. [Suspect]
     Active Substance: DALFAMPRIDINE
     Indication: MULTIPLE SCLEROSIS
     Dosage: (ABOUT 2 YEARS AGO),BID, 10MG E.R. TAB, 60CT
     Route: 048
  18. LEVOTHYROXINE. [Concomitant]
     Active Substance: LEVOTHYROXINE
  19. CALCIUM CITRATE [Concomitant]
     Active Substance: CALCIUM CITRATE

REACTIONS (6)
  - Diarrhoea [Recovered/Resolved]
  - Flushing [Recovered/Resolved]
  - Menopausal symptoms [Recovered/Resolved]
  - Skin cancer [Recovered/Resolved]
  - Headache [Recovered/Resolved]
  - Nausea [Recovered/Resolved]
